FAERS Safety Report 8598218-X (Version None)
Quarter: 2012Q3

REPORT INFORMATION
  Report Type: 
  Country: None (occurrence: None)
  Receive Date: 20120816
  Receipt Date: 20120809
  Transmission Date: 20120928
  Serious: Yes (Other)
  Sender: FDA-Public Use
  Company Number: US-CELGENEUS-163-21880-12081286

PATIENT
  Sex: Female
  Weight: 71.732 kg

DRUGS (4)
  1. PHENERGAN HCL [Concomitant]
     Dosage: 50 MILLIGRAM
     Route: 065
  2. ZOMETA [Concomitant]
     Dosage: 4 MILLIGRAM
     Route: 065
  3. LEXAPRO [Concomitant]
     Dosage: 10 MILLIGRAM
     Route: 065
  4. REVLIMID [Suspect]
     Indication: MULTIPLE MYELOMA
     Dosage: 10 MILLIGRAM
     Route: 048
     Dates: start: 20120611, end: 20120716

REACTIONS (2)
  - BONE DISORDER [None]
  - DRUG INEFFECTIVE [None]
